FAERS Safety Report 8225926-2 (Version None)
Quarter: 2012Q1

REPORT INFORMATION
  Report Type: 
  Country: None (occurrence: None)
  Receive Date: 20120321
  Receipt Date: 20120314
  Transmission Date: 20120608
  Serious: Yes (Other)
  Sender: FDA-Public Use
  Company Number: CA-ROCHE-1017476

PATIENT
  Sex: Female
  Weight: 69 kg

DRUGS (6)
  1. XOLAIR [Suspect]
     Indication: ASTHMA
     Route: 058
     Dates: start: 20051005
  2. FLOVENT [Concomitant]
  3. XOLAIR [Suspect]
     Dates: start: 20100303
  4. SYMBICORT [Concomitant]
  5. THEO-DUR [Concomitant]
  6. NASONEX [Concomitant]

REACTIONS (10)
  - GAIT DISTURBANCE [None]
  - PHARYNGITIS [None]
  - NASAL CONGESTION [None]
  - RHINORRHOEA [None]
  - BLOOD PRESSURE INCREASED [None]
  - SCIATICA [None]
  - OROPHARYNGEAL PAIN [None]
  - NASOPHARYNGITIS [None]
  - NASAL POLYPS [None]
  - PAIN IN EXTREMITY [None]
